FAERS Safety Report 7633554-2 (Version None)
Quarter: 2011Q3

REPORT INFORMATION
  Report Type: 
  Country: None (occurrence: None)
  Receive Date: 20110725
  Receipt Date: 20110630
  Transmission Date: 20111222
  Serious: Yes (Death, Hospitalization)
  Sender: FDA-Public Use
  Company Number: US-GLAXOSMITHKLINE-A0759171A

PATIENT
  Age: 79 Year
  Sex: Female
  Weight: 84.1 kg

DRUGS (8)
  1. GLUCOVANCE [Concomitant]
  2. CLARITIN [Concomitant]
  3. TIAZAC [Concomitant]
  4. IBUPROFEN [Concomitant]
  5. LIPITOR [Concomitant]
  6. PRINIVIL [Concomitant]
  7. AVANDIA [Suspect]
     Indication: TYPE 2 DIABETES MELLITUS
     Dosage: 8MG PER DAY
     Route: 048
     Dates: start: 20060901
  8. FIBER SUPPLEMENT [Concomitant]

REACTIONS (2)
  - CARDIOMYOPATHY [None]
  - CARDIAC FAILURE CONGESTIVE [None]
